FAERS Safety Report 5499740-5 (Version None)
Quarter: 2007Q4

REPORT INFORMATION
  Report Type: 
  Country: None (occurrence: None)
  Receive Date: 20071026
  Receipt Date: 20071024
  Transmission Date: 20080405
  Serious: Yes (Life-Threatening, Hospitalization)
  Sender: FDA-Public Use
  Company Number: DE-BOEHRINGER INGELHEIM PHARMACEUTICALS, INC.-2007-DE-05561DE

PATIENT
  Sex: Female
  Weight: 82 kg

DRUGS (3)
  1. SIFROL [Suspect]
     Indication: RESTLESS LEGS SYNDROME
     Route: 048
     Dates: start: 20070818
  2. CABERGOLIN [Suspect]
     Indication: RESTLESS LEGS SYNDROME
     Route: 048
     Dates: start: 20050101, end: 20070903
  3. L-DOPA COMP [Suspect]
     Indication: RESTLESS LEGS SYNDROME
     Dosage: LEVODOPA 200 MG/BENSERAZIDE 50 MG
     Route: 048
     Dates: start: 20040101

REACTIONS (2)
  - ACUTE CORONARY SYNDROME [None]
  - CARDIAC FAILURE [None]
